FAERS Safety Report 15793992 (Version 1)
Quarter: 2018Q4

REPORT INFORMATION
  Report Type: Spontaneous
  Country: US (occurrence: US)
  Receive Date: 20181213
  Receipt Date: 20181213
  Transmission Date: 20190205
  Serious: Yes (Hospitalization)
  Sender: FDA-Public Use
  Company Number: None

PATIENT
  Age: 70 Year
  Sex: Male
  Weight: 105 kg

DRUGS (1)
  1. TACROLIMUS. [Suspect]
     Active Substance: TACROLIMUS
     Indication: RENAL TRANSPLANT
     Route: 048
     Dates: start: 20070524, end: 20181109

REACTIONS (6)
  - Diarrhoea [None]
  - Diabetic ketoacidosis [None]
  - Physical deconditioning [None]
  - Hyperglycaemic hyperosmolar nonketotic syndrome [None]
  - Pain in extremity [None]
  - Hyperkalaemia [None]

NARRATIVE: CASE EVENT DATE: 20181029
